FAERS Safety Report 20156572 (Version 1)
Quarter: 2021Q4

REPORT INFORMATION
  Report Type: Spontaneous
  Country: BR (occurrence: BR)
  Receive Date: 20211207
  Receipt Date: 20211207
  Transmission Date: 20220304
  Serious: Yes (Other)
  Sender: FDA-Public Use
  Company Number: BR-NOVOPROD-871110

PATIENT
  Age: 71 Year
  Sex: Male
  Weight: 70.3 kg

DRUGS (5)
  1. TRESIBA [Suspect]
     Active Substance: INSULIN DEGLUDEC
     Indication: Type 2 diabetes mellitus
     Dosage: 20 IU
     Route: 065
  2. FIASP [Suspect]
     Active Substance: INSULIN ASPART
     Indication: Type 2 diabetes mellitus
     Dosage: 2 IU
     Route: 065
  3. AMIODARONE HYDROCHLORIDE [Concomitant]
     Active Substance: AMIODARONE HYDROCHLORIDE
     Dosage: UNK
  4. LASIX [Concomitant]
     Active Substance: FUROSEMIDE
     Dosage: UNK
  5. TRAZODONE HYDROCHLORIDE [Concomitant]
     Active Substance: TRAZODONE HYDROCHLORIDE
     Dosage: UNK

REACTIONS (7)
  - Cholelithiasis [Unknown]
  - Renal cyst [Unknown]
  - Cerebral microangiopathy [Unknown]
  - Peripheral motor neuropathy [Unknown]
  - Demyelination [Unknown]
  - Guillain-Barre syndrome [Unknown]
  - Mononeuropathy [Unknown]

NARRATIVE: CASE EVENT DATE: 20210902
